FAERS Safety Report 8721334 (Version 3)
Quarter: 2012Q4

REPORT INFORMATION
  Report Type: 
  Country: CN (occurrence: CN)
  Receive Date: 20120813
  Receipt Date: 20121210
  Transmission Date: 20130627
  Serious: Yes (Other)
  Sender: FDA-Public Use
  Company Number: CN-ABBOTT-12P-035-0965307-00

PATIENT
  Age: 6 Year
  Sex: Female

DRUGS (3)
  1. DEPAKINE SYRUP [Suspect]
     Indication: EPILEPSY
     Dosage: 300 milligram/millilitre: 12 ml 3x/day
     Route: 048
     Dates: start: 2006, end: 201206
  2. DEPAKINE SYRUP [Suspect]
     Dosage: 300 milligram/millilitre: 12 ml 3x/day
     Route: 048
     Dates: start: 201206, end: 20120731
  3. DEPAKINE SYRUP [Suspect]
     Dosage: 12 ml, oral solution, 3 times a day
     Route: 048
     Dates: start: 20120801

REACTIONS (5)
  - Fall [Unknown]
  - Product counterfeit [Unknown]
  - Epilepsy [Not Recovered/Not Resolved]
  - Convulsion [Unknown]
  - Tremor [Unknown]
